FAERS Safety Report 12449085 (Version 1)
Quarter: 2016Q2

REPORT INFORMATION
  Report Type: Spontaneous
  Country: US (occurrence: US)
  Receive Date: 20160608
  Receipt Date: 20160608
  Transmission Date: 20160815
  Serious: No
  Sender: FDA-Public Use
  Company Number: US-ARBOR PHARMACEUTICALS, LLC-US-2016ARB000288

PATIENT

DRUGS (2)
  1. NYMALIZE [Suspect]
     Active Substance: NIMODIPINE
     Dosage: UNK
     Dates: start: 2016
  2. NYMALIZE [Suspect]
     Active Substance: NIMODIPINE
     Indication: PRODUCT USED FOR UNKNOWN INDICATION
     Dosage: 60 MG/20 ML, Q4H
     Route: 048
     Dates: start: 20160319

REACTIONS (1)
  - Diarrhoea [Not Recovered/Not Resolved]

NARRATIVE: CASE EVENT DATE: 2016
